FAERS Safety Report 6058026-0 (Version None)
Quarter: 2009Q1

REPORT INFORMATION
  Report Type: 
  Country: None (occurrence: None)
  Receive Date: 20090127
  Receipt Date: 20090120
  Transmission Date: 20090719
  Serious: Yes (Hospitalization)
  Sender: FDA-Public Use
  Company Number: US025317

PATIENT
  Sex: Male

DRUGS (1)
  1. TREANDA [Suspect]
     Indication: CHRONIC LYMPHOCYTIC LEUKAEMIA
     Dosage: 100 MG/M2 PER DOSE (TWO CYCLES ADMINISTERED) INTRAVENOUS
     Route: 042

REACTIONS (3)
  - DISORIENTATION [None]
  - EMBOLISM [None]
  - FATIGUE [None]
